FAERS Safety Report 23722052 (Version 2)
Quarter: 2024Q2

REPORT INFORMATION
  Report Type: Spontaneous
  Country: JP (occurrence: JP)
  Receive Date: 20240409
  Receipt Date: 20240418
  Transmission Date: 20240716
  Serious: Yes (Hospitalization, Other)
  Sender: FDA-Public Use
  Company Number: JP-Axellia-005067

PATIENT
  Age: 46 Year
  Sex: Female

DRUGS (9)
  1. VANCOMYCIN [Suspect]
     Active Substance: VANCOMYCIN
     Indication: Peritonitis
     Dosage: 30 MG/KG
     Route: 042
  2. FUROSEMIDE [Concomitant]
     Active Substance: FUROSEMIDE
  3. ROXADUSTAT [Concomitant]
     Active Substance: ROXADUSTAT
  4. LANTHANUM CARBONATE [Concomitant]
     Active Substance: LANTHANUM CARBONATE
  5. DEXTROSE [Concomitant]
     Active Substance: DEXTROSE\DEXTROSE MONOHYDRATE
     Dosage: STRENGTH:1.5 %
  6. CALCIUM CARBONATE [Concomitant]
     Active Substance: CALCIUM CARBONATE
  7. ALFACALCIDOL [Concomitant]
     Active Substance: ALFACALCIDOL
  8. MEROPENEM [Concomitant]
     Active Substance: MEROPENEM
     Indication: Peritonitis
     Route: 042
  9. VANCOMYCIN [Suspect]
     Active Substance: VANCOMYCIN
     Indication: Abdominal pain

REACTIONS (4)
  - Renal injury [Recovered/Resolved]
  - Liver injury [Recovered/Resolved]
  - Toxicity to various agents [Recovered/Resolved]
  - Drug reaction with eosinophilia and systemic symptoms [Recovered/Resolved]
